FAERS Safety Report 7919506-3 (Version None)
Quarter: 2011Q4

REPORT INFORMATION
  Report Type: 
  Country: None (occurrence: None)
  Receive Date: 20111115
  Receipt Date: 20111109
  Transmission Date: 20120403
  Serious: Yes (Other)
  Sender: FDA-Public Use
  Company Number: AUR-APL-2011-05527

PATIENT
  Age: 56 Year
  Sex: Female

DRUGS (11)
  1. CARDIZEM [Suspect]
     Indication: PRODUCT USED FOR UNKNOWN INDICATION
  2. DIAZEPAM [Concomitant]
  3. PROZAC [Concomitant]
  4. AMITIZA [Concomitant]
  5. FTY 720 (FINGOLIMOD) [Suspect]
     Indication: PRODUCT USED FOR UNKNOWN INDICATION
     Dosage: (0.5 MG, 1 D),ORAL
     Route: 048
  6. LEVOTHYROXINE SODIUM [Suspect]
     Indication: GENERALISED RESISTANCE TO THYROID HORMONE
     Dosage: 600 MG (300 MG, 2 IN 1 D), ORAL
     Route: 048
  7. LOFREESOR (METOPROLOL TARTRATE) [Concomitant]
  8. DYAZIDE [Concomitant]
  9. CLONIDINE HCL [Suspect]
     Indication: PRODUCT USED FOR UNKNOWN INDICATION
     Dosage: 20 MG (10 MG, 2 IN 1 D), (0.1 MG),ORAL
     Route: 048
  10. LISINOPRIL [Suspect]
     Indication: PRODUCT USED FOR UNKNOWN INDICATION
     Dosage: 20 MG (10 MG, 2 IN 1 D)
  11. VITAMIN D [Concomitant]

REACTIONS (3)
  - ATRIOVENTRICULAR BLOCK [None]
  - HYPERTENSIVE CRISIS [None]
  - BLOOD PRESSURE INADEQUATELY CONTROLLED [None]
